FAERS Safety Report 6746029-X (Version None)
Quarter: 2010Q2

REPORT INFORMATION
  Report Type: 
  Country: None (occurrence: None)
  Receive Date: 20100528
  Receipt Date: 20100517
  Transmission Date: 20101027
  Serious: Yes (Other)
  Sender: FDA-Public Use
  Company Number: FR-ELI_LILLY_AND_COMPANY-FR201005005643

PATIENT
  Age: 69 Year
  Sex: Female

DRUGS (4)
  1. FORTEO [Suspect]
     Indication: OSTEOPOROSIS
     Dosage: 20 UG, DAILY (1/D)
     Route: 058
     Dates: start: 20080701, end: 20100130
  2. CALCITE D [Concomitant]
     Dosage: UNK, UNKNOWN
     Route: 065
  3. PROTELOS [Concomitant]
     Dosage: 2 G, UNKNOWN
     Route: 065
  4. TOPALGIC LP [Concomitant]
     Dosage: 150 MG, UNKNOWN
     Route: 065

REACTIONS (6)
  - BACK PAIN [None]
  - DRUG INEFFECTIVE [None]
  - INTERVERTEBRAL DISC COMPRESSION [None]
  - LUMBAR VERTEBRAL FRACTURE [None]
  - OSTEOARTHRITIS [None]
  - THORACIC VERTEBRAL FRACTURE [None]
